FAERS Safety Report 7955199-7 (Version None)
Quarter: 2011Q4

REPORT INFORMATION
  Report Type: 
  Country: None (occurrence: None)
  Receive Date: 20111202
  Receipt Date: 20111124
  Transmission Date: 20120403
  Serious: Yes (Hospitalization)
  Sender: FDA-Public Use
  Company Number: DE-UCBSA-046515

PATIENT
  Sex: Female

DRUGS (4)
  1. LEVETIRACETAM [Suspect]
     Dates: start: 20110101
  2. MARCUMAR [Concomitant]
     Dates: start: 20110901
  3. KEPPRA [Suspect]
     Dates: start: 20090101, end: 20110101
  4. SILDENAFIL [Concomitant]
     Dates: start: 20110801

REACTIONS (3)
  - RENAL FUNCTION TEST ABNORMAL [None]
  - ALOPECIA [None]
  - GRAND MAL CONVULSION [None]
